FAERS Safety Report 5343350-7 (Version None)
Quarter: 2007Q2

REPORT INFORMATION
  Report Type: 
  Country: None (occurrence: None)
  Receive Date: 20070501
  Receipt Date: 20070110
  Transmission Date: 20071010
  Serious: No
  Sender: FDA-Public Use
  Company Number: 200710247US

PATIENT
  Age: 54 Year
  Sex: Male

DRUGS (2)
  1. KETEK [Suspect]
     Dates: start: 20051001, end: 20051101
  2. PANTOPRAZOLE SODIUM [Concomitant]

REACTIONS (6)
  - DYSGEUSIA [None]
  - GLOSSITIS [None]
  - ORAL DISCOMFORT [None]
  - PAIN [None]
  - PARAESTHESIA [None]
  - TONGUE GEOGRAPHIC [None]
